FAERS Safety Report 5380445-6 (Version None)
Quarter: 2007Q3

REPORT INFORMATION
  Report Type: 
  Country: None (occurrence: None)
  Receive Date: 20070706
  Receipt Date: 20070626
  Transmission Date: 20080115
  Serious: No
  Sender: FDA-Public Use
  Company Number: A0653525A

PATIENT
  Age: 79 Year
  Sex: Female
  Weight: 60 kg

DRUGS (5)
  1. TYKERB [Suspect]
     Indication: BREAST CANCER
     Dosage: 1250MG PER DAY
     Route: 048
     Dates: start: 20070301
  2. LOTREL [Concomitant]
  3. EFFEXOR [Concomitant]
  4. ZOFRAN [Concomitant]
  5. XELODA [Concomitant]
     Indication: BREAST CANCER
     Route: 048
     Dates: start: 20070301

REACTIONS (7)
  - ANOREXIA [None]
  - DIARRHOEA [None]
  - FATIGUE [None]
  - MOUTH ULCERATION [None]
  - NAUSEA [None]
  - RASH [None]
  - WEIGHT DECREASED [None]
